FAERS Safety Report 15273230 (Version 8)
Quarter: 2019Q3

REPORT INFORMATION
  Report Type: Report from Study
  Country: US (occurrence: US)
  Receive Date: 20180813
  Receipt Date: 20190827
  Transmission Date: 20191004
  Serious: Yes (Hospitalization)
  Sender: FDA-Public Use
  Company Number: US-ACTELION-A-NJ2018-177234

PATIENT
  Age: 72 Year
  Sex: Male

DRUGS (24)
  1. LYRICA [Concomitant]
     Active Substance: PREGABALIN
     Dosage: 75 MG, TID
     Route: 048
  2. TYLENOL PM [Concomitant]
     Active Substance: ACETAMINOPHEN\DIPHENHYDRAMINE
     Dosage: 500 MG, QPM
     Route: 048
  3. HUMULIN NOS [Concomitant]
     Active Substance: INSULIN HUMAN
     Dosage: 60 U, QPM
     Route: 058
  4. TORSEMIDE. [Concomitant]
     Active Substance: TORSEMIDE
     Dosage: 20 MG, BID
     Route: 048
  5. FINASTERIDE. [Concomitant]
     Active Substance: FINASTERIDE
     Dosage: 5 MG, QD
     Route: 048
  6. MULTIVITAMIN [Concomitant]
     Active Substance: VITAMINS
     Dosage: UNK, QD
     Route: 048
  7. POTASSIUM [Concomitant]
     Active Substance: POTASSIUM
     Dosage: 10 MEQ, TID
     Route: 048
  8. MEMANTINE. [Concomitant]
     Active Substance: MEMANTINE
     Dosage: 10 MG, BID
  9. METOLAZONE. [Concomitant]
     Active Substance: METOLAZONE
     Dosage: 2.5 MG, QD
  10. TRACLEER [Suspect]
     Active Substance: BOSENTAN
     Indication: PULMONARY ARTERIAL HYPERTENSION
     Dosage: 62.5 MG, BID
     Route: 048
     Dates: start: 201706
  11. ATORVASTATIN [Concomitant]
     Active Substance: ATORVASTATIN
     Dosage: 40 MG, QPM
     Route: 048
  12. LOSARTAN. [Concomitant]
     Active Substance: LOSARTAN
     Dosage: 25 MG, UNK
     Route: 048
  13. CYANOCOBALAMIN. [Concomitant]
     Active Substance: CYANOCOBALAMIN
     Dosage: 500 MCG, BID
     Route: 048
  14. HUMULIN NOS [Concomitant]
     Active Substance: INSULIN HUMAN
     Dosage: 120 U, UNK
     Route: 058
  15. WARFARIN [Concomitant]
     Active Substance: WARFARIN
     Dosage: UNK
  16. ALBUTEROL. [Concomitant]
     Active Substance: ALBUTEROL
     Dosage: 90 MCG/INH
     Route: 055
  17. PREGABALIN. [Concomitant]
     Active Substance: PREGABALIN
  18. SPIRONOLACTONE. [Concomitant]
     Active Substance: SPIRONOLACTONE
     Dosage: 25 MG
  19. CHOLECALCIFEROL [Concomitant]
     Active Substance: CHOLECALCIFEROL
     Dosage: 1000 IU, BID
     Route: 048
  20. OMEPRAZOLE. [Concomitant]
     Active Substance: OMEPRAZOLE
     Dosage: 20 MG, UNK
     Route: 048
  21. INSULIN [Concomitant]
     Active Substance: INSULIN NOS
     Dosage: 500 UNK
  22. OXYGEN. [Concomitant]
     Active Substance: OXYGEN
  23. AMIODARONE [Concomitant]
     Active Substance: AMIODARONE
     Dosage: 400 MG, UNK
     Route: 048
  24. AMITRIPTYLINE [Concomitant]
     Active Substance: AMITRIPTYLINE
     Dosage: 10 MG, BID
     Route: 048

REACTIONS (19)
  - Cardiac ablation [Unknown]
  - Haemoglobin decreased [Unknown]
  - Colonoscopy [Unknown]
  - Epistaxis [Recovered/Resolved]
  - Dizziness [Unknown]
  - Balance disorder [Recovered/Resolved]
  - Polypectomy [Recovered/Resolved]
  - Fluid retention [Unknown]
  - Dyspnoea exertional [Recovered/Resolved]
  - Polyp [Recovered/Resolved]
  - Internal haemorrhage [Unknown]
  - Faeces discoloured [Recovered/Resolved]
  - Nasopharyngitis [Unknown]
  - Cough [Unknown]
  - Blood loss anaemia [Unknown]
  - Transfusion [Unknown]
  - Fall [Recovered/Resolved]
  - Dyspnoea [Recovered/Resolved]
  - Gastrointestinal haemorrhage [Recovered/Resolved]

NARRATIVE: CASE EVENT DATE: 20180719
